FAERS Safety Report 6062889-2 (Version None)
Quarter: 2009Q1

REPORT INFORMATION
  Report Type: 
  Country: None (occurrence: None)
  Receive Date: 20090202
  Receipt Date: 20090202
  Transmission Date: 20090719
  Serious: Yes (Other)
  Sender: FDA-Public Use
  Company Number: None

PATIENT
  Age: 27 Year
  Sex: Female
  Weight: 54.4316 kg

DRUGS (1)
  1. ADVAIR DISKUS 100/50 [Suspect]
     Dosage: INHAL
     Route: 055

REACTIONS (3)
  - FEELING ABNORMAL [None]
  - PANIC ATTACK [None]
  - TOBACCO USER [None]
